FAERS Safety Report 24710000 (Version 1)
Quarter: 2024Q4

REPORT INFORMATION
  Report Type: Spontaneous
  Country: RU (occurrence: RU)
  Receive Date: 20241209
  Receipt Date: 20241209
  Transmission Date: 20250114
  Serious: Yes (Death)
  Sender: BOEHRINGER INGELHEIM
  Company Number: RU-BoehringerIngelheim-2024-BI-067157

PATIENT
  Sex: Female

DRUGS (1)
  1. NINTEDANIB [Suspect]
     Active Substance: NINTEDANIB
     Indication: Interstitial lung disease
     Route: 048
     Dates: start: 2022, end: 202407

REACTIONS (2)
  - Acute respiratory failure [Fatal]
  - Pulmonary arterial hypertension [Fatal]
